FAERS Safety Report 14331773 (Version 1)
Quarter: 2017Q4

REPORT INFORMATION
  Report Type: Spontaneous
  Country: US (occurrence: US)
  Receive Date: 20171228
  Receipt Date: 20171228
  Transmission Date: 20180321
  Serious: Yes (Other)
  Sender: FDA-Public Use
  Company Number: US-009507513-1712USA010663

PATIENT
  Age: 38 Year
  Sex: Female
  Weight: 50.79 kg

DRUGS (1)
  1. NUVARING [Suspect]
     Active Substance: ETHINYL ESTRADIOL\ETONOGESTREL
     Indication: IN VITRO FERTILISATION
     Dosage: 1 RING, UNK
     Route: 067
     Dates: start: 20171206, end: 20171220

REACTIONS (11)
  - Cervix injury [Unknown]
  - Dysuria [Unknown]
  - Vaginal haemorrhage [Unknown]
  - Hypersensitivity [Unknown]
  - Cervix inflammation [Unknown]
  - Vulvovaginal inflammation [Unknown]
  - Vulvovaginal injury [Unknown]
  - Medical device site discomfort [Unknown]
  - Vulvovaginal burning sensation [Unknown]
  - Vulvovaginal pain [Unknown]
  - Product use in unapproved indication [Unknown]

NARRATIVE: CASE EVENT DATE: 201712
